FAERS Safety Report 9166175 (Version 1)
Quarter: 2013Q1

REPORT INFORMATION
  Report Type: Spontaneous
  Country: JP (occurrence: JP)
  Receive Date: 20130315
  Receipt Date: 20130315
  Transmission Date: 20140127
  Serious: Yes (Other)
  Sender: FDA-Public Use
  Company Number: JP-MILLENNIUM PHARMACEUTICALS, INC.-2013-01993

PATIENT
  Sex: 0

DRUGS (4)
  1. VELCADE [Suspect]
     Indication: PLASMA CELL MYELOMA
     Dosage: UNK
     Route: 058
     Dates: start: 20121218, end: 20130305
  2. DEXAMETHASONE [Concomitant]
     Indication: PLASMA CELL MYELOMA
     Dosage: 20 MG, UNK
     Dates: start: 20121218
  3. ANTIBIOTICS [Concomitant]
     Dosage: UNK
     Dates: start: 201302
  4. QUINOLONE NOS [Concomitant]
     Dosage: UNK
     Dates: start: 201302

REACTIONS (1)
  - Lung disorder [Unknown]
